FAERS Safety Report 4870543-5 (Version None)
Quarter: 2005Q4

REPORT INFORMATION
  Report Type: 
  Country: None (occurrence: None)
  Receive Date: 20051228
  Receipt Date: 20051213
  Transmission Date: 20060501
  Serious: Yes (Death)
  Sender: FDA-Public Use
  Company Number: 2005-BP-21420RO

PATIENT
  Age: 21 Week
  Sex: 0

DRUGS (4)
  1. CYCLOPHOSPHAMIDE [Suspect]
     Dosage: SEE TEXT
  2. METHYLPREDNISOLONE [Concomitant]
  3. PREDNISONE [Concomitant]
  4. AZATHIOPRINE [Concomitant]

REACTIONS (2)
  - DRUG EXPOSURE DURING PREGNANCY [None]
  - INTRA-UTERINE DEATH [None]
